FAERS Safety Report 4695519-2 (Version None)
Quarter: 2005Q2

REPORT INFORMATION
  Report Type: 
  Country: None (occurrence: None)
  Receive Date: 20050620
  Receipt Date: 20050620
  Transmission Date: 20051028
  Serious: Yes (Death)
  Sender: FDA-Public Use
  Company Number: None

PATIENT
  Age: 64 Year
  Sex: Female
  Weight: 104 kg

DRUGS (10)
  1. NAFCILLIN     2 GRAMS [Suspect]
     Indication: ENDOCARDITIS STAPHYLOCOCCAL
     Dosage: 2 GRAMS    Q 4 HOURS   INTRAVENOU
     Route: 042
     Dates: start: 20050430, end: 20050529
  2. RIFAMPIN [Concomitant]
  3. DOCUSATE [Concomitant]
  4. ALBUTEROL [Concomitant]
  5. PREVACID [Concomitant]
  6. AMITRIPTYLINE HCL [Concomitant]
  7. MS CONTIN [Concomitant]
  8. PHOSLO [Concomitant]
  9. EPOGEN [Concomitant]
  10. COUMADIN [Concomitant]

REACTIONS (1)
  - STEVENS-JOHNSON SYNDROME [None]
